FAERS Safety Report 4526114-3 (Version None)
Quarter: 2004Q4

REPORT INFORMATION
  Report Type: 
  Country: None (occurrence: None)
  Receive Date: 20041126
  Receipt Date: 20041012
  Transmission Date: 20050328
  Serious: No
  Sender: FDA-Public Use
  Company Number: SU-2004-002752

PATIENT
  Age: 71 Year
  Sex: Female
  Weight: 90.7194 kg

DRUGS (5)
  1. BENICAR [Suspect]
     Indication: HYPERTENSION
     Dosage: 20 MG QD PO
     Route: 048
     Dates: start: 20041010
  2. LIPITOR [Concomitant]
  3. FOSAMAX [Concomitant]
  4. HCT [Concomitant]
  5. MULTIVITAMIN [Concomitant]

REACTIONS (1)
  - DIZZINESS [None]
